FAERS Safety Report 11437247 (Version 1)
Quarter: 2015Q3

REPORT INFORMATION
  Report Type: Spontaneous
  Country: US (occurrence: US)
  Receive Date: 20150821
  Receipt Date: 20150821
  Transmission Date: 20151125
  Serious: No
  Sender: FDA-Public Use
  Company Number: US-ELI_LILLY_AND_COMPANY-US200703004841

PATIENT
  Age: 35 Year
  Sex: Female
  Weight: 61.22 kg

DRUGS (1)
  1. CYMBALTA [Suspect]
     Active Substance: DULOXETINE HYDROCHLORIDE
     Indication: FIBROMYALGIA
     Dates: start: 20070102

REACTIONS (13)
  - Hypoaesthesia [Unknown]
  - Drug withdrawal syndrome [Unknown]
  - Somnolence [Unknown]
  - Nausea [Unknown]
  - Migraine [Unknown]
  - Paraesthesia [Recovered/Resolved with Sequelae]
  - Crying [Unknown]
  - Lethargy [Unknown]
  - Dehydration [Unknown]
  - Mood swings [Unknown]
  - Diarrhoea [Unknown]
  - Vertigo [Unknown]
  - Depression [Unknown]

NARRATIVE: CASE EVENT DATE: 20070301
